FAERS Safety Report 8555996-3 (Version None)
Quarter: 2012Q3

REPORT INFORMATION
  Report Type: 
  Country: None (occurrence: None)
  Receive Date: 20120719
  Receipt Date: 20120705
  Transmission Date: 20120928
  Serious: Yes (Death)
  Sender: FDA-Public Use
  Company Number: 1278377

PATIENT
  Age: 73 Year
  Sex: Male

DRUGS (7)
  1. CISPLATIN [Suspect]
     Indication: CHEMOTHERAPY
     Dosage: 130 MG, TOTAL, INTRAVENOUS DRIP
     Route: 041
     Dates: start: 20120330, end: 20120330
  2. ALOXI [Concomitant]
  3. FLUOROURACIL [Suspect]
     Indication: CHEMOTHERAPY
     Dosage: 1580 MG/DAY, 6900 MG TOTAL
     Dates: start: 20120330, end: 20120404
  4. DOCETAXEL [Suspect]
     Indication: CHEMOTHERAPY
     Dosage: 130 MG TOTAL, INTRAVENOUS
     Route: 042
     Dates: start: 20120330, end: 20120330
  5. TRIMETON [Concomitant]
  6. DEXAMETHASONE [Concomitant]
  7. ZANTAC [Concomitant]

REACTIONS (9)
  - DYSPHAGIA [None]
  - LEUKOPENIA [None]
  - SEPTIC SHOCK [None]
  - BLOOD CULTURE POSITIVE [None]
  - ORAL FUNGAL INFECTION [None]
  - THROMBOCYTOPENIA [None]
  - KLEBSIELLA TEST POSITIVE [None]
  - BLOOD CREATININE INCREASED [None]
  - NEUTROPENIA [None]
